FAERS Safety Report 14158822 (Version 1)
Quarter: 2017Q4

REPORT INFORMATION
  Report Type: Spontaneous
  Country: PL (occurrence: PL)
  Receive Date: 20171103
  Receipt Date: 20171103
  Transmission Date: 20180321
  Serious: Yes (Congenital Anomaly, Other)
  Sender: FDA-Public Use
  Company Number: PL-TEVA-820656ISR

PATIENT
  Age: 42 Year
  Sex: Male

DRUGS (3)
  1. ROPINIROLE. [Suspect]
     Active Substance: ROPINIROLE
     Dosage: 8 MILLIGRAM DAILY;
  2. LEVODOPA [Suspect]
     Active Substance: LEVODOPA
  3. LEVETIRACETAM. [Concomitant]
     Active Substance: LEVETIRACETAM
     Indication: EPILEPSY

REACTIONS (2)
  - Perry syndrome [Unknown]
  - Drug effect incomplete [Unknown]
